FAERS Safety Report 11752921 (Version 2)
Quarter: 2016Q1

REPORT INFORMATION
  Report Type: Report from Study
  Country: US (occurrence: US)
  Receive Date: 20151119
  Receipt Date: 20160210
  Transmission Date: 20160525
  Serious: Yes (Other)
  Sender: FDA-Public Use
  Company Number: US-ROCHE-1663198

PATIENT
  Age: 42 Year
  Sex: Male

DRUGS (4)
  1. INTERLEUKIN 2 [Concomitant]
     Active Substance: ALDESLEUKIN
     Route: 065
     Dates: start: 20140428
  2. FLUDARABINE [Concomitant]
     Active Substance: FLUDARABINE PHOSPHATE
  3. VEMURAFENIB [Suspect]
     Active Substance: VEMURAFENIB
     Indication: METASTATIC MALIGNANT MELANOMA
     Route: 065
     Dates: start: 20140301
  4. CYCLOPHOSPHAMIDE. [Concomitant]
     Active Substance: CYCLOPHOSPHAMIDE

REACTIONS (7)
  - Platelet count decreased [Recovered/Resolved]
  - Neoplasm malignant [Unknown]
  - Lymphocyte count decreased [Recovered/Resolved]
  - Second primary malignancy [Recovered/Resolved]
  - Benign neoplasm [Unknown]
  - Neutrophil count decreased [Recovered/Resolved]
  - White blood cell count decreased [Recovered/Resolved]

NARRATIVE: CASE EVENT DATE: 20140404
